FAERS Safety Report 24630025 (Version 1)
Quarter: 2024Q4

REPORT INFORMATION
  Report Type: Spontaneous
  Country: US (occurrence: US)
  Receive Date: 20241118
  Receipt Date: 20241118
  Transmission Date: 20250115
  Serious: No
  Sender: GRIFOLS
  Company Number: US-IGSA-BIG0029243

PATIENT
  Sex: Female
  Weight: 86.168 kg

DRUGS (5)
  1. XEMBIFY [Suspect]
     Active Substance: HUMAN IMMUNOGLOBULIN G
     Indication: Blood immunoglobulin G decreased
     Dosage: 16 GRAM, Q.WK.
     Route: 058
     Dates: start: 20240320
  2. XEMBIFY [Suspect]
     Active Substance: HUMAN IMMUNOGLOBULIN G
     Dosage: 16 GRAM, Q.WK.
     Route: 058
     Dates: start: 20240320
  3. XEMBIFY [Suspect]
     Active Substance: HUMAN IMMUNOGLOBULIN G
     Dosage: 16 GRAM, Q.WK.
     Route: 058
     Dates: start: 20240320
  4. XEMBIFY [Suspect]
     Active Substance: HUMAN IMMUNOGLOBULIN G
     Dosage: 14 GRAM, Q.WK.
     Route: 058
  5. XEMBIFY [Suspect]
     Active Substance: HUMAN IMMUNOGLOBULIN G
     Dosage: 13 GRAM, Q.WK.
     Route: 058
     Dates: start: 202305

REACTIONS (3)
  - Candida infection [Unknown]
  - Stomatitis [Unknown]
  - Fatigue [Unknown]
